FAERS Safety Report 23837442 (Version 2)
Quarter: 2024Q2

REPORT INFORMATION
  Report Type: Spontaneous
  Country: CA (occurrence: CA)
  Receive Date: 20240509
  Receipt Date: 20240525
  Transmission Date: 20240716
  Serious: Yes (Hospitalization)
  Sender: FDA-Public Use
  Company Number: CA-TEVA-VS-3194619

PATIENT
  Age: 7 Decade
  Sex: Female

DRUGS (2)
  1. DULOXETINE [Suspect]
     Active Substance: DULOXETINE
     Indication: Depression
     Route: 065
  2. DIAZEPAM [Suspect]
     Active Substance: DIAZEPAM
     Indication: Anxiety
     Route: 065

REACTIONS (4)
  - Postictal psychosis [Recovering/Resolving]
  - Drug withdrawal syndrome [Recovering/Resolving]
  - Seizure [Recovered/Resolved]
  - Product dose omission in error [Unknown]
